FAERS Safety Report 19000532 (Version 1)
Quarter: 2021Q1

REPORT INFORMATION
  Report Type: Spontaneous
  Country: DE (occurrence: DE)
  Receive Date: 20210312
  Receipt Date: 20210312
  Transmission Date: 20210420
  Serious: Yes (Other)
  Sender: FDA-Public Use
  Company Number: DE-TEVA-2021-DE-1889045

PATIENT
  Sex: Male

DRUGS (1)
  1. SILDENAFIL RATIOPHARM 100 MG FILMTABLETTEN [Suspect]
     Active Substance: SILDENAFIL
     Dosage: USED FOR 6 MONTHS
     Route: 048
     Dates: start: 2020

REACTIONS (1)
  - Erectile dysfunction [Not Recovered/Not Resolved]
